FAERS Safety Report 11091054 (Version 1)
Quarter: 2015Q2

REPORT INFORMATION
  Report Type: Spontaneous
  Country: GB (occurrence: GB)
  Receive Date: 20150505
  Receipt Date: 20150505
  Transmission Date: 20150821
  Serious: Yes (Hospitalization, Disabling)
  Sender: FDA-Public Use
  Company Number: GB-CIPLA LTD.-2015GB03442

PATIENT

DRUGS (5)
  1. ASPIRIN. [Suspect]
     Active Substance: ASPIRIN
     Dosage: 800 MG, SINGLE (8 X 100 MG IN OVERDOSE)
     Route: 048
     Dates: start: 20150417, end: 20150417
  2. DOMPERIDONE [Suspect]
     Active Substance: DOMPERIDONE
     Dosage: 100 MG, SINGLE (10 X 10 MG TAKEN IN OVERDOSE)
     Route: 048
     Dates: start: 20150417, end: 20150417
  3. SERTRALINE [Suspect]
     Active Substance: SERTRALINE HYDROCHLORIDE
     Indication: DEPRESSION
     Dosage: 1400 MG, SINGLE (50MG X 28 TABLETS TAKEN IN OVERDOSE)
     Route: 048
     Dates: start: 20150417, end: 20150417
  4. FLUOXETINE [Suspect]
     Active Substance: FLUOXETINE\FLUOXETINE HYDROCHLORIDE
     Dosage: 1 DF, SINGLE (1 TABLET - UNCLEAR DOSE)
     Route: 048
     Dates: start: 20150417, end: 20150417
  5. CANNABIS [Concomitant]
     Active Substance: CANNABIS SATIVA SUBSP. INDICA TOP
     Dosage: LARGE AMOUNT OF CANNABIS
     Dates: start: 20150416

REACTIONS (13)
  - Intention tremor [Recovering/Resolving]
  - Cognitive disorder [Recovering/Resolving]
  - Palpitations [Unknown]
  - Muscle twitching [Unknown]
  - Coordination abnormal [Unknown]
  - Intentional overdose [Unknown]
  - Dystonia [Recovering/Resolving]
  - Tachycardia [Unknown]
  - Mydriasis [Recovered/Resolved]
  - Diplopia [Recovered/Resolved]
  - Nystagmus [Recovered/Resolved]
  - Gait disturbance [Recovering/Resolving]
  - Agitation [Unknown]

NARRATIVE: CASE EVENT DATE: 20150417
